FAERS Safety Report 9335289 (Version 1)
Quarter: 2013Q2

REPORT INFORMATION
  Report Type: Report from Study
  Country: BD (occurrence: BD)
  Receive Date: 20130606
  Receipt Date: 20130606
  Transmission Date: 20140414
  Serious: Yes (Death)
  Sender: FDA-Public Use
  Company Number: PHHY2013BD057347

PATIENT
  Age: 56 Year
  Sex: Male

DRUGS (2)
  1. ACLASTA [Suspect]
     Indication: OSTEOPOROSIS
     Dosage: UNK
     Route: 042
     Dates: start: 20110621
  2. ACLASTA [Suspect]
     Dosage: UNK
     Route: 042
     Dates: start: 20120609

REACTIONS (1)
  - Cerebrovascular accident [Fatal]
